FAERS Safety Report 9887488 (Version 1)
Quarter: 2014Q1

REPORT INFORMATION
  Report Type: Spontaneous
  Country: HU (occurrence: None)
  Receive Date: 20140206
  Receipt Date: 20140206
  Transmission Date: 20141002
  Serious: Yes (Other)
  Sender: FDA-Public Use
  Company Number: 2014000026

PATIENT
  Age: 59 Year
  Sex: Male
  Weight: 115 kg

DRUGS (4)
  1. ACEON (PERINDOPRIL ERBUMINE) TABLET [Suspect]
     Indication: HYPERTENSION
     Route: 048
     Dates: start: 201212
  2. ACEON [Suspect]
     Indication: HYPERTENSION
  3. CLOPIDOGREL (CLOPIDOGREL) [Concomitant]
  4. TALLITON (CARVEDILOL) [Concomitant]

REACTIONS (3)
  - Nausea [None]
  - Cough [None]
  - Blood pressure increased [None]
